FAERS Safety Report 6189701-5 (Version None)
Quarter: 2009Q2

REPORT INFORMATION
  Report Type: 
  Country: None (occurrence: None)
  Receive Date: 20090512
  Receipt Date: 20090512
  Transmission Date: 20091009
  Serious: Yes (Hospitalization, Other)
  Sender: FDA-Public Use
  Company Number: None

PATIENT
  Age: 47 Year
  Sex: Female
  Weight: 95.2554 kg

DRUGS (3)
  1. KENALOG-40 [Suspect]
     Indication: BRONCHITIS
     Dosage: 1 SHOT
     Dates: start: 20081020, end: 20081020
  2. KENALOG-40 [Suspect]
     Indication: MULTIPLE ALLERGIES
     Dosage: 1 SHOT
     Dates: start: 20081020, end: 20081020
  3. KENALOG-40 [Suspect]
     Dosage: 1 SHOT
     Dates: start: 20090405, end: 20090405

REACTIONS (8)
  - ARTHRALGIA [None]
  - ASTHENIA [None]
  - ATRIAL FIBRILLATION [None]
  - HAIR GROWTH ABNORMAL [None]
  - MENSTRUATION IRREGULAR [None]
  - OEDEMA PERIPHERAL [None]
  - SWELLING [None]
  - WEIGHT INCREASED [None]
